FAERS Safety Report 22895228 (Version 5)
Quarter: 2023Q4

REPORT INFORMATION
  Report Type: Spontaneous
  Country: US (occurrence: US)
  Receive Date: 20230901
  Receipt Date: 20231228
  Transmission Date: 20240109
  Serious: Yes (Other)
  Sender: FDA-Public Use
  Company Number: US-BEH-2023162751

PATIENT
  Age: 45 Year
  Sex: Female

DRUGS (2)
  1. HAEGARDA [Suspect]
     Active Substance: HUMAN C1-ESTERASE INHIBITOR
     Indication: Hereditary angioedema
     Dosage: 3500 INTERNATIONAL UNIT, BIW, EVERY 3 DAYS
     Route: 058
     Dates: start: 202307
  2. HAEGARDA [Suspect]
     Active Substance: HUMAN C1-ESTERASE INHIBITOR
     Indication: Prophylaxis

REACTIONS (14)
  - Hereditary angioedema [Unknown]
  - Hereditary angioedema [Unknown]
  - No adverse event [Unknown]
  - Product dose omission issue [Unknown]
  - Device issue [Unknown]
  - Device defective [Unknown]
  - Liquid product physical issue [Unknown]
  - Hereditary angioedema [Unknown]
  - Circulatory collapse [Unknown]
  - Hereditary angioedema [Unknown]
  - No adverse event [Unknown]
  - Intentional product misuse [Unknown]
  - Hereditary angioedema [Unknown]
  - Hereditary angioedema [Unknown]

NARRATIVE: CASE EVENT DATE: 20230801
